FAERS Safety Report 9248805 (Version 2)
Quarter: 2013Q2

REPORT INFORMATION
  Report Type: Spontaneous
  Country: FR (occurrence: FR)
  Receive Date: 20130423
  Receipt Date: 20130516
  Transmission Date: 20140414
  Serious: Yes (Hospitalization)
  Sender: FDA-Public Use
  Company Number: FR-ROCHE-1217362

PATIENT
  Age: 68 Year
  Sex: Male

DRUGS (2)
  1. LUCENTIS [Suspect]
     Indication: DIABETIC RETINOPATHY
     Route: 050
     Dates: start: 20120912
  2. LUCENTIS [Suspect]
     Route: 050
     Dates: start: 20121122, end: 20121122

REACTIONS (1)
  - Renal failure acute [Recovered/Resolved with Sequelae]
